FAERS Safety Report 15035925 (Version 2)
Quarter: 2020Q1

REPORT INFORMATION
  Report Type: Spontaneous
  Country: CA (occurrence: CA)
  Receive Date: 20180620
  Receipt Date: 20200309
  Transmission Date: 20200409
  Serious: Yes (Other)
  Sender: FDA-Public Use
  Company Number: CA-JNJFOC-20180611136

PATIENT
  Age: 60 Year
  Sex: Male
  Weight: 104 kg

DRUGS (6)
  1. NAPROXEN CAPSULES 200 MG [Suspect]
     Active Substance: NAPROXEN
     Indication: ARTHRALGIA
  2. MOTRIN [Suspect]
     Active Substance: IBUPROFEN
     Indication: ARTHRALGIA
  3. NAPROXEN CAPSULES 200 MG [Suspect]
     Active Substance: NAPROXEN
     Indication: CYSTITIS
     Dosage: FOR 4 DAYS
     Route: 048
     Dates: start: 20151216, end: 20151220
  4. DELATESTRYL [Suspect]
     Active Substance: TESTOSTERONE ENANTHATE
     Indication: TRANSGENDER OPERATION
     Dosage: FOR 20 YEARS
     Dates: start: 1996
  5. DELATESTRYL [Suspect]
     Active Substance: TESTOSTERONE ENANTHATE
     Dosage: FOR 20 YEARS
  6. MOTRIN [Suspect]
     Active Substance: IBUPROFEN
     Indication: CYSTITIS
     Dosage: 1-2 TABLETS, EVERY SECOND DAY
     Route: 048
     Dates: start: 20151217, end: 20151220

REACTIONS (1)
  - Lower gastrointestinal haemorrhage [Recovered/Resolved]

NARRATIVE: CASE EVENT DATE: 20151220
